FAERS Safety Report 12903847 (Version 1)
Quarter: 2016Q4

REPORT INFORMATION
  Report Type: Report from Study
  Country: None (occurrence: BR)
  Receive Date: 20161102
  Receipt Date: 20161102
  Transmission Date: 20170207
  Serious: Yes (Other)
  Sender: FDA-Public Use
  Company Number: BR-ABBVIE-16K-020-1767599-00

PATIENT
  Age: 58 Year
  Sex: Female
  Weight: 72 kg

DRUGS (2)
  1. HUMIRA [Suspect]
     Active Substance: ADALIMUMAB
     Indication: RHEUMATOID ARTHRITIS
     Route: 058
     Dates: start: 20160610
  2. HUMIRA [Suspect]
     Active Substance: ADALIMUMAB
     Route: 058

REACTIONS (5)
  - Visual impairment [Unknown]
  - Eye inflammation [Recovering/Resolving]
  - Acrochordon [Unknown]
  - Immunodeficiency [Unknown]
  - Asthenia [Unknown]

NARRATIVE: CASE EVENT DATE: 201609
